FAERS Safety Report 8104456-2 (Version None)
Quarter: 2012Q1

REPORT INFORMATION
  Report Type: 
  Country: None (occurrence: None)
  Receive Date: 20120201
  Receipt Date: 20120123
  Transmission Date: 20120608
  Serious: Yes (Other)
  Sender: FDA-Public Use
  Company Number: PHHY2012US008027

PATIENT
  Age: 66 Year
  Sex: Male

DRUGS (3)
  1. DAPTOMYCIN [Suspect]
     Indication: BACTERAEMIA
  2. MEROPENEM [Suspect]
     Indication: BACTERAEMIA
  3. FLUCONAZOLE [Suspect]
     Indication: BACTERAEMIA

REACTIONS (1)
  - ACUTE MYELOID LEUKAEMIA RECURRENT [None]
